FAERS Safety Report 20822891 (Version 1)
Quarter: 2022Q2

REPORT INFORMATION
  Report Type: Spontaneous
  Country: US (occurrence: US)
  Receive Date: 20220512
  Receipt Date: 20220512
  Transmission Date: 20220720
  Serious: No
  Sender: FDA-Public Use
  Company Number: US-MAYNE PHARMA-2021MYN000526

PATIENT
  Sex: Female

DRUGS (2)
  1. DORYX [Suspect]
     Active Substance: DOXYCYCLINE HYCLATE
     Indication: Cyst
     Dosage: 200 MG, QD
     Route: 048
     Dates: start: 20210819
  2. DORYX [Suspect]
     Active Substance: DOXYCYCLINE HYCLATE
     Indication: Infection

REACTIONS (1)
  - Headache [Unknown]

NARRATIVE: CASE EVENT DATE: 20210819
